FAERS Safety Report 5995470-1 (Version None)
Quarter: 2008Q4

REPORT INFORMATION
  Report Type: 
  Country: None (occurrence: None)
  Receive Date: 20081212
  Receipt Date: 20080626
  Transmission Date: 20090506
  Serious: No
  Sender: FDA-Public Use
  Company Number: US-AMGEN-KDL287821

PATIENT
  Sex: Male

DRUGS (7)
  1. ENBREL [Suspect]
     Indication: PSORIATIC ARTHROPATHY
     Route: 058
     Dates: start: 20080101
  2. METHOTREXATE [Concomitant]
     Route: 058
  3. FOLIC ACID [Concomitant]
  4. ZOCOR [Concomitant]
  5. TENORMIN [Concomitant]
  6. ASPIRIN [Concomitant]
  7. CALCIUM [Concomitant]

REACTIONS (4)
  - DRUG INEFFECTIVE [None]
  - INJECTION SITE IRRITATION [None]
  - INJECTION SITE PAIN [None]
  - INJECTION SITE REACTION [None]
